FAERS Safety Report 10144121 (Version 2)
Quarter: 2014Q2

REPORT INFORMATION
  Report Type: Spontaneous
  Country: FR (occurrence: FR)
  Receive Date: 20140430
  Receipt Date: 20140430
  Transmission Date: 20141212
  Serious: Yes (Other)
  Sender: FDA-Public Use
  Company Number: FR-ABBVIE-06P-056-0325644-00

PATIENT
  Age: 34 Year
  Sex: Female

DRUGS (3)
  1. DEPAKINE TABLETS [Suspect]
     Indication: EPILEPSY
  2. LEVOTHYROX [Concomitant]
     Indication: HYPOTHYROIDISM
  3. FOLIC ACID [Concomitant]
     Indication: PRODUCT USED FOR UNKNOWN INDICATION

REACTIONS (2)
  - Gestational diabetes [Unknown]
  - Thrombocytopenia [Unknown]
